FAERS Safety Report 9901237 (Version 2)
Quarter: 2014Q1

REPORT INFORMATION
  Report Type: Spontaneous
  Country: US (occurrence: US)
  Receive Date: 20140217
  Receipt Date: 20140227
  Transmission Date: 20141002
  Serious: Yes (Other)
  Sender: FDA-Public Use
  Company Number: US-BAYER-2014-023523

PATIENT
  Sex: Male

DRUGS (3)
  1. XOFIGO [Suspect]
     Indication: PROSTATE CANCER
     Dosage: UNK
     Dates: start: 2013
  2. ABIRATERONE [Concomitant]
     Dosage: UNK
     Dates: start: 2013
  3. PREDNISONE [Concomitant]
     Dosage: UNK
     Dates: start: 2013

REACTIONS (3)
  - Deep vein thrombosis [None]
  - Lymphadenopathy [None]
  - Metastases to liver [None]
